FAERS Safety Report 9411104 (Version 1)
Quarter: 2013Q3

REPORT INFORMATION
  Report Type: Spontaneous
  Country: GB (occurrence: GB)
  Receive Date: 20130721
  Receipt Date: 20130721
  Transmission Date: 20140515
  Serious: Yes (Other)
  Sender: FDA-Public Use
  Company Number: GB-MYLANLABS-2013S1015069

PATIENT
  Sex: Female

DRUGS (1)
  1. CITALOPRAM [Suspect]
     Indication: ANXIETY
     Route: 048

REACTIONS (3)
  - Abortion spontaneous [Unknown]
  - Exposure during pregnancy [Unknown]
  - Off label use [Unknown]
